FAERS Safety Report 8983168 (Version 2)
Quarter: 2013Q3

REPORT INFORMATION
  Report Type: Report from Study
  Country: MX (occurrence: MX)
  Receive Date: 20121224
  Receipt Date: 20130801
  Transmission Date: 20140515
  Serious: No
  Sender: FDA-Public Use
  Company Number: PHHY2012MX118069

PATIENT
  Age: 66 Year
  Sex: Female

DRUGS (2)
  1. ONBREZ [Suspect]
     Indication: DYSPNOEA
     Dosage: 2 DF, DAILY
     Dates: start: 201112, end: 201207
  2. ONBREZ [Suspect]
     Indication: OFF LABEL USE

REACTIONS (2)
  - Dyspnoea [Recovered/Resolved]
  - Inappropriate schedule of drug administration [Unknown]
